FAERS Safety Report 9496162 (Version 1)
Quarter: 2013Q3

REPORT INFORMATION
  Report Type: Spontaneous
  Country: FI (occurrence: FI)
  Receive Date: 20130904
  Receipt Date: 20130904
  Transmission Date: 20140515
  Serious: Yes (Hospitalization)
  Sender: FDA-Public Use
  Company Number: FI-RANBAXY-2013RR-72620

PATIENT
  Age: 63 Year
  Sex: Female

DRUGS (3)
  1. ATORVASTATIN ORION 20MG TABLETTI, KALVOPAALLYSTEINEN [Suspect]
     Indication: HYPERCHOLESTEROLAEMIA
     Dosage: 20 MG, QD
     Route: 048
     Dates: start: 20130717, end: 20130812
  2. VENTOLINE DISKUS [Concomitant]
     Indication: ASTHMA
     Dosage: TWO DOSES DAILY (200 ?G PER DOSE), + PER NEED
     Route: 055
  3. SERETIDE DISKUS [Concomitant]
     Indication: ASTHMA
     Dosage: 2 DF (50/250 ?G/ DOSE), BID
     Route: 055

REACTIONS (4)
  - Lung disorder [Not Recovered/Not Resolved]
  - Peak expiratory flow rate decreased [Not Recovered/Not Resolved]
  - Productive cough [Not Recovered/Not Resolved]
  - Product substitution issue [Not Recovered/Not Resolved]
